FAERS Safety Report 6900883-7 (Version None)
Quarter: 2010Q3

REPORT INFORMATION
  Report Type: 
  Country: None (occurrence: None)
  Receive Date: 20100803
  Receipt Date: 20100726
  Transmission Date: 20110219
  Serious: Yes (Hospitalization)
  Sender: FDA-Public Use
  Company Number: A0862321A

PATIENT
  Age: 64 Year
  Sex: Male

DRUGS (3)
  1. AUGMENTIN '125' [Suspect]
     Route: 065
     Dates: end: 20100101
  2. LANTUS [Suspect]
     Dates: start: 20080101
  3. UNSPECIFIED MEDICATION [Concomitant]

REACTIONS (2)
  - HYPOGLYCAEMIA [None]
  - PANCREATITIS [None]
